FAERS Safety Report 21394593 (Version 2)
Quarter: 2022Q4

REPORT INFORMATION
  Report Type: Spontaneous
  Country: JP (occurrence: None)
  Receive Date: 20220930
  Receipt Date: 20221125
  Transmission Date: 20230112
  Serious: Yes (Hospitalization, Other)
  Sender: FDA-Public Use
  Company Number: JP-Merck Healthcare KGaA-9354872

PATIENT
  Age: 37 Year
  Sex: Female
  Weight: 57 kg

DRUGS (20)
  1. OVIDREL [Suspect]
     Active Substance: CHORIOGONADOTROPIN ALFA
     Indication: Controlled ovarian stimulation
     Route: 058
     Dates: start: 20201011, end: 20201011
  2. OVIDREL [Suspect]
     Active Substance: CHORIOGONADOTROPIN ALFA
     Indication: Infertility
  3. GONAL-F RFF [Suspect]
     Active Substance: FOLLITROPIN
     Indication: Controlled ovarian stimulation
     Dosage: 50-150 IU
     Route: 058
     Dates: start: 20201004
  4. GONAL-F RFF [Suspect]
     Active Substance: FOLLITROPIN
     Dosage: 50-150 IU
     Route: 058
     Dates: start: 20201005
  5. GONAL-F RFF [Suspect]
     Active Substance: FOLLITROPIN
     Dosage: 50-150 IU
     Route: 058
     Dates: start: 20201007
  6. GONAL-F RFF [Suspect]
     Active Substance: FOLLITROPIN
     Dosage: 50-150 IU
     Route: 058
     Dates: start: 20201011
  7. GONADOTROPHIN, CHORIONIC [Suspect]
     Active Substance: GONADOTROPHIN, CHORIONIC
     Indication: Controlled ovarian stimulation
     Route: 030
     Dates: start: 20201003
  8. GONADOTROPHIN, CHORIONIC [Suspect]
     Active Substance: GONADOTROPHIN, CHORIONIC
     Route: 030
     Dates: start: 20201004
  9. GONADOTROPHIN, CHORIONIC [Suspect]
     Active Substance: GONADOTROPHIN, CHORIONIC
     Route: 030
     Dates: start: 20201005
  10. GONADOTROPHIN, CHORIONIC [Suspect]
     Active Substance: GONADOTROPHIN, CHORIONIC
     Route: 030
     Dates: start: 20201006
  11. GONADOTROPHIN, CHORIONIC [Suspect]
     Active Substance: GONADOTROPHIN, CHORIONIC
     Route: 030
     Dates: start: 20201008
  12. GONADOTROPHIN, CHORIONIC [Suspect]
     Active Substance: GONADOTROPHIN, CHORIONIC
     Route: 030
     Dates: start: 20201009
  13. LUTORAL [Concomitant]
     Active Substance: CHLORMADINONE ACETATE
     Indication: Anovulatory cycle
     Route: 048
     Dates: start: 20201003, end: 20201012
  14. CABERGOLINE [Concomitant]
     Active Substance: CABERGOLINE
     Indication: Product used for unknown indication
     Dosage: 0.125 MG X 2 (UNIT UNSPECIFIED) (A 5-DAY SUPPLY WAS PRESCRIBED)
  15. CABERGOLINE [Concomitant]
     Active Substance: CABERGOLINE
     Dosage: 0.125 MG X 2 (UNIT UNSPECIFIED) (A 3-DAY SUPPLY WAS PRESCRIBED; TOTAL FOR 8 DAYS)
  16. CETROTIDE [Concomitant]
     Active Substance: CETRORELIX ACETATE
     Indication: Product used for unknown indication
     Dosage: 0.25 MG X 1 (UNSPECIFIED UNIT)
  17. SOLULACT S [Concomitant]
     Indication: Product used for unknown indication
     Dosage: SOLULACT S (TRANSFUSION) AT 500 ML X 2 BAGS
  18. ENOXAPARIN SODIUM [Concomitant]
     Active Substance: ENOXAPARIN SODIUM
     Indication: Product used for unknown indication
     Dosage: 2000 IU X 1 (UNIT UNSPECIFIED)
  19. ALACEPRIL [Concomitant]
     Active Substance: ALACEPRIL
     Indication: Product used for unknown indication
     Dosage: 25 MG X 1 (A 3-DAY SUPPLY WAS PRESCRIBED)
  20. ALACEPRIL [Concomitant]
     Active Substance: ALACEPRIL
     Dosage: 25 MG X 1 (A 3-DAY SUPPLY WAS PRESCRIBED; TOTAL FOR 6 DAYS)

REACTIONS (3)
  - Ovarian hyperstimulation syndrome [Recovered/Resolved]
  - Ascites [Recovered/Resolved]
  - Off label use [Unknown]

NARRATIVE: CASE EVENT DATE: 20201012
